FAERS Safety Report 5081007-0 (Version None)
Quarter: 2006Q3

REPORT INFORMATION
  Report Type: 
  Country: None (occurrence: None)
  Receive Date: 20060810
  Receipt Date: 20060728
  Transmission Date: 20061208
  Serious: Yes (Death, Hospitalization)
  Sender: FDA-Public Use
  Company Number: HQWYE488228JUL06

PATIENT
  Sex: Male

DRUGS (8)
  1. CORDARONE [Suspect]
     Indication: SUPRAVENTRICULAR TACHYCARDIA
     Dosage: SEE IMAGE
     Route: 048
     Dates: start: 20040101
  2. CORDARONE [Suspect]
     Dosage: SEE IMAGE
     Route: 042
     Dates: start: 20060626, end: 20060626
  3. CORDARONE [Suspect]
     Dosage: SEE IMAGE
     Route: 042
     Dates: start: 20060626, end: 20060627
  4. LASIX [Concomitant]
  5. ACETYLSALICYLIC ACID SRT [Concomitant]
  6. EUTIROX (LEVOTHYROXINE) [Concomitant]
  7. VENITRIN (GLYCERYL TRINITRATE) [Concomitant]
  8. DELTACORTENE (PREDNISONE) [Concomitant]

REACTIONS (8)
  - ACUTE RESPIRATORY FAILURE [None]
  - CARDIAC FAILURE [None]
  - COMA HEPATIC [None]
  - GENERALISED OEDEMA [None]
  - HEPATITIS FULMINANT [None]
  - HYPOTHYROIDISM [None]
  - LUNG DISORDER [None]
  - RENAL FAILURE CHRONIC [None]
